FAERS Safety Report 9396307 (Version 1)
Quarter: 2013Q3

REPORT INFORMATION
  Report Type: Spontaneous
  Country: JP (occurrence: JP)
  Receive Date: 20130711
  Receipt Date: 20130711
  Transmission Date: 20140515
  Serious: Yes (Hospitalization)
  Sender: FDA-Public Use
  Company Number: JP-EISAI INC-E2090-02743-SPO-JP

PATIENT
  Age: 39 Year
  Sex: Male

DRUGS (2)
  1. EXCEGRAN [Suspect]
     Indication: EPILEPSY
     Dosage: UNKNOWN
     Route: 048
  2. CLONAZEPAM [Suspect]
     Indication: EPILEPSY
     Dosage: UNKNOWN
     Route: 048

REACTIONS (1)
  - Hallucination, auditory [Recovering/Resolving]
